FAERS Safety Report 8397874-9 (Version None)
Quarter: 2012Q2

REPORT INFORMATION
  Report Type: 
  Country: None (occurrence: None)
  Receive Date: 20120531
  Receipt Date: 20120528
  Transmission Date: 20120825
  Serious: Yes (Other)
  Sender: FDA-Public Use
  Company Number: PHHY2011AU56460

PATIENT
  Sex: Female

DRUGS (18)
  1. CARTIA XT [Concomitant]
     Dosage: 100 MG, QD
     Route: 048
  2. OMEGA [Concomitant]
     Dosage: 1 DF, TID
     Route: 048
  3. REFRESH PLUS [Concomitant]
     Dosage: 0.5 %, UNK
  4. SIGMACORT [Concomitant]
     Dosage: 1 %, UNK
  5. TRAVATAN [Concomitant]
     Dosage: 40 UG/ML, UNK
  6. GENTEAL [Concomitant]
     Dosage: 0.3 %, UNK
  7. VITAMIN D [Concomitant]
     Dosage: 1000 IU, TID
  8. ACETAMINOPHEN [Concomitant]
     Dosage: 2 DF, TID
     Route: 048
  9. ZOLEDRONOC ACID [Suspect]
     Indication: OSTEOPOROSIS
     Dosage: 5 MG,
     Route: 042
     Dates: start: 20110621
  10. BECONASE [Concomitant]
     Dosage: 50 UG, UNK
  11. MICARDIS [Concomitant]
     Dosage: 80 MG, QD
     Route: 048
  12. LEVOTHYROXINE SODIUM [Concomitant]
     Dosage: 0.1 MG, UNK
     Route: 048
  13. VISCOTEARS [Concomitant]
     Dosage: 0.2 %, UNK
  14. CALCIUM [Concomitant]
     Dosage: 1500 MG, BID
  15. RABEPRAZOLE SODIUM [Concomitant]
     Dosage: 10 MG, QD
  16. ADVANTAN [Concomitant]
  17. LIPITOR [Concomitant]
     Dosage: 20 MG, QD
     Route: 048
  18. MOTILIUM [Concomitant]
     Dosage: 10 MG, QD
     Route: 048

REACTIONS (2)
  - HEART RATE INCREASED [None]
  - BLOOD PRESSURE INCREASED [None]
